APPROVED DRUG PRODUCT: SULFAMETHOPRIM-DS
Active Ingredient: SULFAMETHOXAZOLE; TRIMETHOPRIM
Strength: 800MG;160MG
Dosage Form/Route: TABLET;ORAL
Application: A070032 | Product #001
Applicant: NOVEL LABORATORIES INC
Approved: Feb 15, 1985 | RLD: No | RS: No | Type: DISCN